FAERS Safety Report 8203353-1 (Version None)
Quarter: 2012Q1

REPORT INFORMATION
  Report Type: 
  Country: None (occurrence: None)
  Receive Date: 20120312
  Receipt Date: 20120229
  Transmission Date: 20120608
  Serious: Yes (Hospitalization)
  Sender: FDA-Public Use
  Company Number: GB-GILEAD-2012-0051560

PATIENT
  Sex: Female

DRUGS (9)
  1. AMBRISENTAN [Suspect]
     Indication: PULMONARY ARTERIAL HYPERTENSION
     Dosage: 10 MG, QD
     Route: 048
     Dates: start: 20110711
  2. ATORVASTATIN [Concomitant]
     Indication: HYPERCHOLESTEROLAEMIA
     Dosage: 80MG PER DAY
     Route: 048
     Dates: start: 20111101
  3. ACETAMINOPHEN [Concomitant]
     Indication: RHEUMATOID ARTHRITIS
     Dosage: 1G AS REQUIRED
     Route: 048
     Dates: start: 20090701
  4. PLACEBO [Suspect]
     Indication: PULMONARY ARTERIAL HYPERTENSION
     Dosage: 1 DF, QD
     Route: 048
     Dates: start: 20110711
  5. PENICILLAMINE [Concomitant]
     Indication: RHEUMATOID ARTHRITIS
     Dosage: 500MG PER DAY
     Route: 048
     Dates: start: 19831101
  6. WARFARIN SODIUM [Concomitant]
     Indication: PULMONARY ARTERIAL HYPERTENSION
     Dosage: 1 DF, UNK
     Route: 048
     Dates: start: 20110810, end: 20120227
  7. TRAMADOL HCL [Concomitant]
     Indication: RHEUMATOID ARTHRITIS
     Dosage: 100MG AS REQUIRED
     Route: 048
     Dates: start: 20090701
  8. FUROSEMIDE [Concomitant]
     Indication: PULMONARY ARTERIAL HYPERTENSION
     Dosage: 80MG AS REQUIRED
     Route: 048
     Dates: start: 20110823
  9. OXYGEN [Concomitant]
     Indication: PULMONARY ARTERIAL HYPERTENSION
     Dosage: 4U CONTINUOUS
     Route: 055
     Dates: start: 20110822

REACTIONS (1)
  - BLOOD ALKALINE PHOSPHATASE INCREASED [None]
